FAERS Safety Report 6177444-3 (Version None)
Quarter: 2009Q2

REPORT INFORMATION
  Report Type: 
  Country: None (occurrence: None)
  Receive Date: 20090504
  Receipt Date: 20090316
  Transmission Date: 20091009
  Serious: No
  Sender: FDA-Public Use
  Company Number: US-BAYER-200814460BCC

PATIENT
  Sex: Female

DRUGS (1)
  1. FINACEA [Suspect]
     Indication: ROSACEA
     Route: 061
     Dates: start: 20080901

REACTIONS (1)
  - ROSACEA [None]
